FAERS Safety Report 9739128 (Version 2)
Quarter: 2014Q1

REPORT INFORMATION
  Report Type: Report from Study
  Country: JP (occurrence: JP)
  Receive Date: 20131209
  Receipt Date: 20140213
  Transmission Date: 20141002
  Serious: Yes (Hospitalization)
  Sender: FDA-Public Use
  Company Number: JP-SHIRE-ALL1-2013-08279

PATIENT
  Age: 45 Year
  Sex: Female

DRUGS (11)
  1. 405 (LANTHANUM CARBONATE) [Suspect]
     Indication: HYPERPHOSPHATAEMIA
     Dosage: 1500 MG, OTHER (DAILY DOSE)
     Route: 048
     Dates: start: 20110316, end: 20130610
  2. 405 (LANTHANUM CARBONATE) [Suspect]
     Dosage: 750 MG, OTHER (DAILY DOSE)
     Route: 048
     Dates: start: 20100731, end: 20110315
  3. PRECIPITATED CALCIUM CARBONATE [Concomitant]
     Indication: HYPERPHOSPHATAEMIA
     Dosage: 3000 MG, UNKNOWN
     Route: 048
     Dates: end: 20101113
  4. ROCALTROL [Concomitant]
     Indication: PRODUCT USED FOR UNKNOWN INDICATION
     Dosage: 0.5 ?G, UNKNOWN
     Route: 048
     Dates: start: 20100715, end: 20101114
  5. ONEALFA [Concomitant]
     Indication: PRODUCT USED FOR UNKNOWN INDICATION
     Dosage: 0.5 ?G, UNKNOWN
     Route: 048
     Dates: start: 20101209
  6. TAKEPRON [Concomitant]
     Indication: PRODUCT USED FOR UNKNOWN INDICATION
     Dosage: 15 MG, UNKNOWN
     Route: 048
  7. OPALMON [Concomitant]
     Indication: PRODUCT USED FOR UNKNOWN INDICATION
     Dosage: 5 ?G, UNKNOWN
     Route: 048
  8. SELBEX [Concomitant]
     Indication: PRODUCT USED FOR UNKNOWN INDICATION
     Dosage: 50 MG, UNKNOWN
     Route: 048
  9. MICARDIS [Concomitant]
     Indication: PRODUCT USED FOR UNKNOWN INDICATION
     Dosage: 40 MG, UNKNOWN
     Route: 048
  10. ADALAT [Concomitant]
     Indication: PRODUCT USED FOR UNKNOWN INDICATION
     Dosage: 60 MG, UNKNOWN
     Route: 048
  11. NOVORAPID [Concomitant]
     Indication: PRODUCT USED FOR UNKNOWN INDICATION
     Dosage: 5 IU, UNKNOWN
     Route: 058

REACTIONS (2)
  - Decreased appetite [Recovering/Resolving]
  - Hypertensive encephalopathy [Recovered/Resolved]
